FAERS Safety Report 8615249-1 (Version None)
Quarter: 2012Q3

REPORT INFORMATION
  Report Type: 
  Country: None (occurrence: None)
  Receive Date: 20120823
  Receipt Date: 20120820
  Transmission Date: 20120928
  Serious: No
  Sender: FDA-Public Use
  Company Number: US-PFIZER INC-2012204668

PATIENT
  Age: 21 Year
  Sex: Female
  Weight: 78.005 kg

DRUGS (6)
  1. DEMEROL [Suspect]
     Indication: PAIN
     Dosage: UNK
  2. HYDROCODONE BITARTRATE [Suspect]
     Indication: PAIN
     Dosage: UNK
     Dates: start: 20111101
  3. CORTISONE ACETATE [Suspect]
     Indication: PAIN
     Dosage: UNK
     Dates: start: 19880101
  4. DARVOCET-N 50 [Suspect]
     Indication: PAIN
     Dosage: UNK
     Dates: start: 20080101
  5. MORPHINE SULFATE [Suspect]
     Indication: PAIN
     Dosage: UNK
     Dates: start: 19840101
  6. BENADRYL [Suspect]
     Dosage: UNK
     Dates: start: 19880101

REACTIONS (1)
  - HYPERSENSITIVITY [None]
